FAERS Safety Report 17813644 (Version 3)
Quarter: 2020Q2

REPORT INFORMATION
  Report Type: Spontaneous
  Country: US (occurrence: US)
  Receive Date: 20200521
  Receipt Date: 20200601
  Transmission Date: 20200714
  Serious: No
  Sender: FDA-Public Use
  Company Number: US-PFIZER INC-2019194278

PATIENT
  Age: 43 Year
  Sex: Male

DRUGS (6)
  1. DILANTIN [Suspect]
     Active Substance: PHENYTOIN
     Dosage: 100 MG
  2. DILANTIN [Suspect]
     Active Substance: PHENYTOIN
     Dosage: 300 MG, DAILY ( 1 CAPSULE IN THE MORNING, 2 CAPSULES AT BEDTIME DAILY)
  3. DILANTIN [Suspect]
     Active Substance: PHENYTOIN
     Indication: SEIZURE
     Dosage: 5 DF, DAILY (2 C AM, 3 C AT BEDTIME)
  4. DILANTIN [Suspect]
     Active Substance: PHENYTOIN
     Dosage: 500 MG, DAILY (100MG 2 CAPSULE IN THE MORNING AND 3 CAPSULES AT NIGHT AT BEDTIME BY MOUTH)
     Route: 048
     Dates: start: 20181211
  5. DILANTIN [Suspect]
     Active Substance: PHENYTOIN
     Dosage: 400 MG, DAILY ( 2 CAPSULES IN THE MORNING, 2 CAPSULES AT BEDTIME DAILY)
     Route: 048
     Dates: start: 201901
  6. DILANTIN [Suspect]
     Active Substance: PHENYTOIN
     Dosage: 500 MG, DAILY (2 CAPSULES IN THE MORNING, 3 CAPSULES AT BEDTIME DAILY )
     Route: 048
     Dates: start: 201902

REACTIONS (1)
  - Product dose omission [Recovered/Resolved]
